FAERS Safety Report 14581733 (Version 2)
Quarter: 2018Q4

REPORT INFORMATION
  Report Type: Report from Study
  Country: US (occurrence: US)
  Receive Date: 20180228
  Receipt Date: 20181123
  Transmission Date: 20190204
  Serious: No
  Sender: FDA-Public Use
  Company Number: PHEH2018US008190

PATIENT
  Age: 29 Year
  Sex: Female

DRUGS (2)
  1. GILENYA [Suspect]
     Active Substance: FINGOLIMOD HYDROCHLORIDE
     Indication: MULTIPLE SCLEROSIS
     Dosage: 0.5 MG, QD
     Route: 048
     Dates: start: 20170510
  2. GILENYA [Suspect]
     Active Substance: FINGOLIMOD HYDROCHLORIDE
     Dosage: 0.5 MG, QOD
     Route: 048
     Dates: start: 201808

REACTIONS (6)
  - Tongue blistering [Recovering/Resolving]
  - Tongue erythema [Recovering/Resolving]
  - White blood cell count decreased [Recovering/Resolving]
  - Tongue ulceration [Recovering/Resolving]
  - Underdose [Unknown]
  - Glossodynia [Recovering/Resolving]

NARRATIVE: CASE EVENT DATE: 20180119
